FAERS Safety Report 6232088-X (Version None)
Quarter: 2009Q2

REPORT INFORMATION
  Report Type: 
  Country: None (occurrence: None)
  Receive Date: 20090616
  Receipt Date: 20090608
  Transmission Date: 20091009
  Serious: Yes (Other)
  Sender: FDA-Public Use
  Company Number: GB-ABBOTT-09P-167-0575123-00

PATIENT
  Sex: Female
  Weight: 100 kg

DRUGS (1)
  1. REDUCTIL [Suspect]
     Indication: OBESITY
     Route: 048
     Dates: start: 20080601, end: 20090501

REACTIONS (1)
  - ABORTION SPONTANEOUS [None]
